FAERS Safety Report 7082002-2 (Version None)
Quarter: 2010Q4

REPORT INFORMATION
  Report Type: 
  Country: None (occurrence: None)
  Receive Date: 20101103
  Receipt Date: 20101027
  Transmission Date: 20110411
  Serious: Yes (Other)
  Sender: FDA-Public Use
  Company Number: JP-PFIZER INC-2010136670

PATIENT
  Age: 63 Year
  Sex: Female

DRUGS (1)
  1. SEIBULE [Suspect]
     Indication: DIABETES MELLITUS
     Dosage: TOTAL DAILY DOSE OF 150 MG
     Route: 048
     Dates: start: 20100724, end: 20100728

REACTIONS (1)
  - HYPOGLYCAEMIA [None]
